FAERS Safety Report 5240425-8 (Version None)
Quarter: 2007Q1

REPORT INFORMATION
  Report Type: 
  Country: None (occurrence: None)
  Receive Date: 20061208
  Receipt Date: 20060120
  Transmission Date: 20070707
  Serious: Yes (Other)
  Sender: FDA-Public Use
  Company Number: 2005UW16791

PATIENT
  Age: 47 Year
  Sex: Male
  Weight: 74.842 kg

DRUGS (3)
  1. CRESTOR [Suspect]
     Indication: BLOOD CHOLESTEROL INCREASED
     Dosage: 10 MG DAILY PO
     Route: 048
     Dates: start: 20051001, end: 20051104
  2. CRESTOR [Suspect]
     Indication: BLOOD CHOLESTEROL INCREASED
     Dosage: 510 MG DAILY PO
     Route: 048
     Dates: start: 20051201
  3. ACCUPRIL [Concomitant]

REACTIONS (3)
  - DYSARTHRIA [None]
  - MYALGIA [None]
  - RASH PRURITIC [None]
